FAERS Safety Report 19480843 (Version 4)
Quarter: 2021Q3

REPORT INFORMATION
  Report Type: Spontaneous
  Country: US (occurrence: US)
  Receive Date: 20210701
  Receipt Date: 20210729
  Transmission Date: 20211014
  Serious: No
  Sender: FDA-Public Use
  Company Number: US-TEVA-2021-US-1924289

PATIENT
  Age: 67 Year
  Sex: Female
  Weight: 69.85 kg

DRUGS (1)
  1. AJOVY [Suspect]
     Active Substance: FREMANEZUMAB-VFRM
     Indication: MIGRAINE
     Dosage: 225 MG / 1.5 ML, TOOK 3 SHOTS OF AJOVY
     Route: 065
     Dates: start: 20210610

REACTIONS (7)
  - Device breakage [Unknown]
  - Adverse drug reaction [Unknown]
  - Hypersensitivity [Unknown]
  - Incorrect dose administered by device [Unknown]
  - Migraine [Unknown]
  - Accidental exposure to product [Unknown]
  - Headache [Unknown]

NARRATIVE: CASE EVENT DATE: 2021
